FAERS Safety Report 13582122 (Version 1)
Quarter: 2017Q2

REPORT INFORMATION
  Report Type: Spontaneous
  Country: IT (occurrence: IT)
  Receive Date: 20170525
  Receipt Date: 20170525
  Transmission Date: 20170830
  Serious: Yes (Other)
  Sender: FDA-Public Use
  Company Number: IT-TEVA-770368ACC

PATIENT
  Age: 2 Year
  Sex: Female

DRUGS (3)
  1. DOXORUBICIN HYDROCHLORIDE. [Suspect]
     Active Substance: DOXORUBICIN HYDROCHLORIDE
     Indication: GANGLIONEUROBLASTOMA
  2. VINCRISTINE [Suspect]
     Active Substance: VINCRISTINE
     Route: 065
  3. CYCLOPHOSPHAMIDE. [Suspect]
     Active Substance: CYCLOPHOSPHAMIDE
     Route: 065

REACTIONS (3)
  - Product use in unapproved indication [Unknown]
  - Ejection fraction decreased [Unknown]
  - Off label use [Unknown]
